FAERS Safety Report 9746090 (Version 3)
Quarter: 2015Q3

REPORT INFORMATION
  Report Type: Spontaneous
  Country: US (occurrence: US)
  Receive Date: 20131211
  Receipt Date: 20150722
  Transmission Date: 20151125
  Serious: No
  Sender: FDA-Public Use
  Company Number: US-GILEAD-2009-0023736

PATIENT
  Age: 31 Year
  Sex: Female
  Weight: 76.66 kg

DRUGS (2)
  1. ATRIPLA [Suspect]
     Active Substance: EFAVIRENZ\EMTRICITABINE\TENOFOVIR DISOPROXIL FUMARATE
     Indication: HIV INFECTION
     Route: 048
     Dates: start: 20090113, end: 20090724
  2. CAPTOPRIL. [Concomitant]
     Active Substance: CAPTOPRIL
     Indication: HYPERTENSION

REACTIONS (1)
  - Genotype drug resistance test positive [Not Recovered/Not Resolved]

NARRATIVE: CASE EVENT DATE: 20090626
